FAERS Safety Report 17989499 (Version 2)
Quarter: 2020Q3

REPORT INFORMATION
  Report Type: Report from Study
  Country: US (occurrence: US)
  Receive Date: 20200707
  Receipt Date: 20200715
  Transmission Date: 20201103
  Serious: No
  Sender: FDA-Public Use
  Company Number: NVSC2020US188574

PATIENT
  Age: 35 Year
  Sex: Female

DRUGS (1)
  1. COSENTYX [Suspect]
     Active Substance: SECUKINUMAB
     Indication: AXIAL SPONDYLOARTHRITIS
     Dosage: UNK
     Route: 065
     Dates: start: 201706, end: 201911

REACTIONS (2)
  - Arthritis [Recovering/Resolving]
  - Ligament calcification [Not Recovered/Not Resolved]

NARRATIVE: CASE EVENT DATE: 201706
